FAERS Safety Report 8601622-4 (Version None)
Quarter: 2012Q3

REPORT INFORMATION
  Report Type: 
  Country: None (occurrence: None)
  Receive Date: 20120817
  Receipt Date: 20120118
  Transmission Date: 20120928
  Serious: No
  Sender: FDA-Public Use
  Company Number: US-BRISTOL-MYERS SQUIBB COMPANY-16319196

PATIENT
  Age: 67 Year
  Sex: Female

DRUGS (1)
  1. SPRYCEL [Suspect]
     Indication: CHRONIC MYELOID LEUKAEMIA
     Dosage: STOPPED FOR 4DAYS,DOSE REDUCED TO 50MG AND INCREASED TO 70MG,PRESENTLY ON 50MG DAILY FOR LAST 2WKS

REACTIONS (7)
  - MALAISE [None]
  - PYREXIA [None]
  - CHILLS [None]
  - NAUSEA [None]
  - DYSPNOEA [None]
  - CHEST PAIN [None]
  - PAIN [None]
